FAERS Safety Report 21008884 (Version 4)
Quarter: 2023Q1

REPORT INFORMATION
  Report Type: Other
  Country: GB (occurrence: None)
  Receive Date: 20220627
  Receipt Date: 20230317
  Transmission Date: 20230418
  Serious: Yes (Hospitalization)
  Sender: FDA-Public Use
  Company Number: GB-ROCHE-3122489

PATIENT
  Age: 60 Year
  Sex: Male

DRUGS (2)
  1. TOCILIZUMAB [Suspect]
     Active Substance: TOCILIZUMAB
     Indication: Giant cell arteritis
     Route: 058
     Dates: start: 20220519
  2. TOCILIZUMAB [Suspect]
     Active Substance: TOCILIZUMAB
     Indication: Idiopathic pulmonary fibrosis
     Route: 058
     Dates: start: 202205

REACTIONS (5)
  - Arthropathy [Unknown]
  - Vision blurred [Not Recovered/Not Resolved]
  - Muscle spasms [Unknown]
  - Product storage error [Unknown]
  - Muscle spasms [Unknown]
